FAERS Safety Report 20375526 (Version 1)
Quarter: 2022Q1

REPORT INFORMATION
  Report Type: Other
  Country: None (occurrence: US)
  Receive Date: 20220125
  Receipt Date: 20220125
  Transmission Date: 20220424
  Serious: Yes (Hospitalization)
  Sender: FDA-Public Use
  Company Number: US-B.Braun Medical Inc.-2124269

PATIENT
  Age: 65 Year
  Sex: Female

DRUGS (1)
  1. CEFTAZIDIME AND DEXTROSE [Suspect]
     Active Substance: CEFTAZIDIME

REACTIONS (1)
  - Drug-induced liver injury [Recovering/Resolving]
